FAERS Safety Report 8425531-9 (Version None)
Quarter: 2012Q2

REPORT INFORMATION
  Report Type: 
  Country: None (occurrence: None)
  Receive Date: 20120605
  Receipt Date: 20120605
  Transmission Date: 20120825
  Serious: Yes (Disabling, Other)
  Sender: FDA-Public Use
  Company Number: None

PATIENT
  Sex: Female
  Weight: 140.6151 kg

DRUGS (1)
  1. SIMVASTATIN [Suspect]
     Indication: BLOOD CHOLESTEROL INCREASED
     Dosage: ONCE AT NIGHT
     Dates: start: 19950101, end: 20120101

REACTIONS (5)
  - PAIN IN EXTREMITY [None]
  - RENAL DISORDER [None]
  - GAIT DISTURBANCE [None]
  - MUSCLE DISORDER [None]
  - PAIN [None]
